FAERS Safety Report 8592819-0 (Version None)
Quarter: 2012Q3

REPORT INFORMATION
  Report Type: 
  Country: None (occurrence: None)
  Receive Date: 20120814
  Receipt Date: 20120807
  Transmission Date: 20120928
  Serious: Yes (Death)
  Sender: FDA-Public Use
  Company Number: CA-ROCHE-1099148

PATIENT
  Sex: Male
  Weight: 72.64 kg

DRUGS (4)
  1. IMOVANE [Concomitant]
  2. VALPROIC ACID [Concomitant]
  3. AVASTIN [Suspect]
     Indication: GLIOBLASTOMA
     Route: 042
     Dates: start: 20120127, end: 20120802
  4. DECADRON PHOSPHATE [Concomitant]

REACTIONS (1)
  - DEATH [None]
